FAERS Safety Report 8399975-8 (Version None)
Quarter: 2012Q2

REPORT INFORMATION
  Report Type: 
  Country: None (occurrence: None)
  Receive Date: 20120531
  Receipt Date: 20120522
  Transmission Date: 20120825
  Serious: Yes (Death)
  Sender: FDA-Public Use
  Company Number: JP-BRISTOL-MYERS SQUIBB COMPANY-16599094

PATIENT
  Age: 24 Year
  Sex: Female

DRUGS (3)
  1. VEPESID [Suspect]
  2. DEXAMETHASONE [Suspect]
  3. CYCLOSPORINE [Suspect]

REACTIONS (1)
  - HYPERAMMONAEMIA [None]
